FAERS Safety Report 7209908-5 (Version None)
Quarter: 2011Q1

REPORT INFORMATION
  Report Type: 
  Country: None (occurrence: None)
  Receive Date: 20110105
  Receipt Date: 20101228
  Transmission Date: 20110831
  Serious: Yes (Other)
  Sender: FDA-Public Use
  Company Number: US-BIOGENIDEC-2010BI043911

PATIENT
  Age: 36 Year
  Sex: Female

DRUGS (1)
  1. AVONEX [Suspect]
     Indication: MULTIPLE SCLEROSIS
     Route: 030
     Dates: start: 20090306

REACTIONS (5)
  - PAPILLOMA VIRAL INFECTION [None]
  - SMEAR CERVIX ABNORMAL [None]
  - STRESS [None]
  - CERVICAL DYSPLASIA [None]
  - MULTIPLE SCLEROSIS RELAPSE [None]
